FAERS Safety Report 25009274 (Version 1)
Quarter: 2025Q1

REPORT INFORMATION
  Report Type: Spontaneous
  Country: PT (occurrence: PT)
  Receive Date: 20250225
  Receipt Date: 20250225
  Transmission Date: 20250409
  Serious: Yes (Other)
  Sender: AUROBINDO
  Company Number: PT-INFARMED-T202501-913

PATIENT
  Age: 77 Year
  Sex: Female
  Weight: 64 kg

DRUGS (2)
  1. ACETAMINOPHEN [Suspect]
     Active Substance: ACETAMINOPHEN
     Indication: Postoperative care
     Dosage: 1000 MILLIGRAM, 3 TIMES A DAY (CETOROLAC 30MG 8H/8H E PARACETAMOL 1000MG 8H/8H)
     Route: 042
     Dates: start: 20250130
  2. KETOROLAC TROMETHAMINE [Suspect]
     Active Substance: KETOROLAC TROMETHAMINE
     Indication: Postoperative care
     Dosage: 30 MILLIGRAM, 3 TIMES A DAY (CETOROLAC 30MG 8H/8H E PARACETAMOL 1000MG 8H/8H)
     Route: 042
     Dates: start: 20250130

REACTIONS (4)
  - Hypotension [Recovered/Resolved]
  - Face oedema [Recovered/Resolved]
  - Erythema [Recovered/Resolved]
  - Bradycardia [Recovered/Resolved]

NARRATIVE: CASE EVENT DATE: 20250130
